FAERS Safety Report 7494669-5 (Version None)
Quarter: 2011Q2

REPORT INFORMATION
  Report Type: 
  Country: None (occurrence: None)
  Receive Date: 20110520
  Receipt Date: 20110512
  Transmission Date: 20111010
  Serious: Yes (Other)
  Sender: FDA-Public Use
  Company Number: IE-GENENTECH-318183

PATIENT
  Sex: Female
  Weight: 57 kg

DRUGS (8)
  1. ADALAT [Concomitant]
     Indication: PRODUCT USED FOR UNKNOWN INDICATION
     Dosage: UNK
     Route: 048
  2. CHLORPHENIRAMINE MALEATE [Concomitant]
     Indication: PRODUCT USED FOR UNKNOWN INDICATION
     Dosage: 4 MG, UNK
     Route: 048
     Dates: start: 20110427
  3. MOBIC [Concomitant]
     Indication: PRODUCT USED FOR UNKNOWN INDICATION
     Dosage: UNK
     Route: 048
  4. RITUXAN [Suspect]
     Indication: MIXED CONNECTIVE TISSUE DISEASE
     Dosage: 1000 MG, UNK
     Route: 042
  5. PREDNISOLONE [Concomitant]
     Indication: PRODUCT USED FOR UNKNOWN INDICATION
     Dosage: 100 MG, UNK
     Route: 042
     Dates: start: 20110427
  6. RITUXAN [Suspect]
     Dosage: 1000 MG, UNK
     Route: 042
     Dates: start: 20110427
  7. ACETAMINOPHEN [Concomitant]
     Indication: PRODUCT USED FOR UNKNOWN INDICATION
     Dosage: 1 G, UNK
     Route: 048
     Dates: start: 20110427
  8. NEXIUM [Concomitant]
     Indication: PRODUCT USED FOR UNKNOWN INDICATION
     Dosage: UNK

REACTIONS (3)
  - COLD SWEAT [None]
  - DYSPNOEA [None]
  - TACHYCARDIA [None]
